FAERS Safety Report 21959737 (Version 3)
Quarter: 2023Q1

REPORT INFORMATION
  Report Type: Report from Study
  Country: US (occurrence: US)
  Receive Date: 20230206
  Receipt Date: 20230309
  Transmission Date: 20230418
  Serious: No
  Sender: FDA-Public Use
  Company Number: US-BIOGEN-2023BI01184427

PATIENT
  Age: 71 Year
  Sex: Female
  Weight: 90.6 kg

DRUGS (5)
  1. ADUCANUMAB [Suspect]
     Active Substance: ADUCANUMAB
     Indication: Dementia Alzheimer^s type
     Route: 050
     Dates: start: 20221205, end: 20221205
  2. ADUCANUMAB [Suspect]
     Active Substance: ADUCANUMAB
     Route: 050
     Dates: start: 20230105, end: 20230105
  3. AMYVID [Suspect]
     Active Substance: FLORBETAPIR F-18
     Indication: Positron emission tomogram
     Route: 050
     Dates: start: 20221014, end: 20221014
  4. DIETARY SUPPLEMENT [Concomitant]
     Active Substance: DIETARY SUPPLEMENT
     Dosage: 1 CAPSULE
     Route: 050
     Dates: start: 2020
  5. EXELON [Concomitant]
     Active Substance: RIVASTIGMINE TARTRATE
     Route: 050
     Dates: start: 20220718

REACTIONS (3)
  - Amyloid related imaging abnormality-oedema/effusion [Not Recovered/Not Resolved]
  - Confusional state [Recovered/Resolved]
  - Amyloid related imaging abnormality-microhaemorrhages and haemosiderin deposits [Not Recovered/Not Resolved]

NARRATIVE: CASE EVENT DATE: 20230111
